FAERS Safety Report 4733666-7 (Version None)
Quarter: 2005Q3

REPORT INFORMATION
  Report Type: 
  Country: None (occurrence: None)
  Receive Date: 20050729
  Receipt Date: 20050524
  Transmission Date: 20060218
  Serious: No
  Sender: FDA-Public Use
  Company Number: COT_0080_2005

PATIENT
  Age: 63 Year
  Sex: Female
  Weight: 86.637 kg

DRUGS (9)
  1. VENTAVIS [Suspect]
     Indication: PULMONARY HYPERTENSION
     Dosage: 5 MCG Q3HR IH
     Route: 055
     Dates: start: 20050505, end: 20050523
  2. COUMADIN [Concomitant]
  3. NORVASC [Concomitant]
  4. BUMEX [Concomitant]
  5. GAS-X [Concomitant]
  6. TYLENOL (CAPLET) [Concomitant]
  7. KLOR-CON [Concomitant]
  8. ASPIRIN [Concomitant]
  9. VICODIN [Concomitant]

REACTIONS (5)
  - ASTHENIA [None]
  - DIARRHOEA [None]
  - DYSPNOEA [None]
  - INFLUENZA [None]
  - NAUSEA [None]
